FAERS Safety Report 7109899-1 (Version None)
Quarter: 2010Q4

REPORT INFORMATION
  Report Type: 
  Country: None (occurrence: None)
  Receive Date: 20101118
  Receipt Date: 20101028
  Transmission Date: 20110411
  Serious: Yes (Hospitalization)
  Sender: FDA-Public Use
  Company Number: FR-BRISTOL-MYERS SQUIBB COMPANY-15377195

PATIENT
  Age: 64 Year
  Sex: Male

DRUGS (1)
  1. IRBESARTAN AND HYDROCHLOROTHIAZIDE [Suspect]
     Indication: HYPERTENSION
     Route: 048
     Dates: end: 20101001

REACTIONS (3)
  - CHOLESTASIS [None]
  - WEIGHT DECREASED [None]
  - WEIGHT GAIN POOR [None]
